FAERS Safety Report 7801537-5 (Version None)
Quarter: 2011Q4

REPORT INFORMATION
  Report Type: 
  Country: None (occurrence: None)
  Receive Date: 20111007
  Receipt Date: 20110930
  Transmission Date: 20120403
  Serious: Yes (Other)
  Sender: FDA-Public Use
  Company Number: JP-JNJFOC-20111002583

PATIENT
  Age: 5 Decade
  Sex: Female

DRUGS (1)
  1. TRAMADOL HYDROCHLORIDE/ACETAMINOPHEN [Suspect]
     Indication: PROCEDURAL PAIN
     Dosage: 1 PER DAY
     Route: 048
     Dates: start: 20110924, end: 20110930

REACTIONS (1)
  - DRUG ERUPTION [None]
